FAERS Safety Report 12542176 (Version 3)
Quarter: 2016Q3

REPORT INFORMATION
  Report Type: Spontaneous
  Country: US (occurrence: US)
  Receive Date: 20160708
  Receipt Date: 20160825
  Transmission Date: 20161109
  Serious: Yes (Hospitalization)
  Sender: FDA-Public Use
  Company Number: US-ALLERGAN-1662141US

PATIENT
  Age: 76 Year
  Sex: Male
  Weight: 88.44 kg

DRUGS (6)
  1. DUREZOL [Concomitant]
     Active Substance: DIFLUPREDNATE
     Indication: GLAUCOMA
     Dosage: 1 GTT, QID
     Route: 047
     Dates: start: 20160611
  2. PILOCARPINE. [Concomitant]
     Active Substance: PILOCARPINE
     Indication: GLAUCOMA
     Dosage: 1 GTT, QID
     Route: 047
     Dates: start: 20160609
  3. DORZOLAMIDE [Concomitant]
     Active Substance: DORZOLAMIDE
     Indication: GLAUCOMA
     Dosage: 1 GTT, TID
     Route: 047
  4. DIAMOX SEQUELS [Concomitant]
     Active Substance: ACETAZOLAMIDE
     Indication: PRODUCT USED FOR UNKNOWN INDICATION
     Dosage: UNK
     Route: 048
     Dates: start: 20160613
  5. COMBIGAN [Suspect]
     Active Substance: BRIMONIDINE TARTRATE\TIMOLOL MALEATE
     Indication: GLAUCOMA
     Dosage: 1 GTT, TID
     Route: 047
     Dates: start: 20160609, end: 20160712
  6. COMBIGAN [Suspect]
     Active Substance: BRIMONIDINE TARTRATE\TIMOLOL MALEATE
     Indication: INTRAOCULAR PRESSURE INCREASED
     Dosage: UNK
     Route: 047

REACTIONS (5)
  - Inappropriate schedule of drug administration [Unknown]
  - Renal failure [Unknown]
  - Product packaging quantity issue [Unknown]
  - Vomiting [Unknown]
  - Dehydration [Unknown]
